FAERS Safety Report 5378260-2 (Version None)
Quarter: 2007Q2

REPORT INFORMATION
  Report Type: 
  Country: None (occurrence: None)
  Receive Date: 20070626
  Receipt Date: 20070618
  Transmission Date: 20071010
  Serious: No
  Sender: FDA-Public Use
  Company Number: AECAN200700091

PATIENT
  Age: 67 Year
  Sex: Female
  Weight: 74.8435 kg

DRUGS (7)
  1. IGIV-C - TALECRIS (IMMUNE GLOBULIN IV (HUMAN), CAPRYLATE/CHROMATOGRAPH [Suspect]
     Indication: IDIOPATHIC THROMBOCYTOPENIC PURPURA
     Dosage: 30 GM; QD; IV
     Route: 042
     Dates: start: 20070313, end: 20070317
  2. IGIV-C - TALECRIS (IMMUNE GLOBULIN IV (HUMAN), CAPRYLATE/CHROMATOGRAPH [Suspect]
  3. ZESTORETIC [Concomitant]
  4. EZETROL [Concomitant]
  5. ZOPICLONE [Concomitant]
  6. ATENOL [Concomitant]
  7. ASCORBIC ACID [Concomitant]

REACTIONS (9)
  - ASTHENIA [None]
  - CHEST PAIN [None]
  - COLD SWEAT [None]
  - DIZZINESS [None]
  - DYSPNOEA [None]
  - HAEMOGLOBIN DECREASED [None]
  - LIVEDO RETICULARIS [None]
  - NAUSEA [None]
  - NODULE ON EXTREMITY [None]
